FAERS Safety Report 6271957-1 (Version None)
Quarter: 2009Q3

REPORT INFORMATION
  Report Type: 
  Country: None (occurrence: None)
  Receive Date: 20090717
  Receipt Date: 20090708
  Transmission Date: 20100115
  Serious: Yes (Hospitalization)
  Sender: FDA-Public Use
  Company Number: FR-WYE-H10149409

PATIENT
  Sex: Male

DRUGS (7)
  1. CORDARONE [Suspect]
     Indication: ARRHYTHMIA SUPRAVENTRICULAR
     Route: 048
     Dates: start: 20070607, end: 20090326
  2. LIORESAL [Concomitant]
     Route: 048
  3. PARACETAMOL [Concomitant]
     Dosage: DOSE UNKNOWN
     Route: 065
     Dates: start: 20090201
  4. TRANSIPEG [Concomitant]
     Dosage: DOSE UNKNOWN
     Route: 048
  5. IXPRIM [Concomitant]
     Dosage: DOSE UNKNOWN
     Route: 048
     Dates: start: 20090201
  6. ASPEGIC 1000 [Concomitant]
     Route: 048
  7. LAROXYL [Concomitant]
     Route: 048

REACTIONS (2)
  - GENERAL PHYSICAL HEALTH DETERIORATION [None]
  - INTERSTITIAL LUNG DISEASE [None]
